FAERS Safety Report 5324430-9 (Version None)
Quarter: 2007Q2

REPORT INFORMATION
  Report Type: 
  Country: None (occurrence: None)
  Receive Date: 20070514
  Receipt Date: 20070502
  Transmission Date: 20071010
  Serious: Yes (Other)
  Sender: FDA-Public Use
  Company Number: US-PFIZER INC-2007036864

PATIENT
  Age: 69 Year

DRUGS (2)
  1. NEURONTIN [Suspect]
  2. CELEBREX [Suspect]

REACTIONS (3)
  - BLADDER DISORDER [None]
  - MYOCARDIAL INFARCTION [None]
  - RENAL DISORDER [None]
